FAERS Safety Report 5331994-8 (Version None)
Quarter: 2007Q2

REPORT INFORMATION
  Report Type: 
  Country: None (occurrence: None)
  Receive Date: 20070523
  Receipt Date: 20070514
  Transmission Date: 20071010
  Serious: Yes (Other)
  Sender: FDA-Public Use
  Company Number: PHBS2007BE05585

PATIENT
  Age: 75 Year
  Sex: Female

DRUGS (5)
  1. GLEEVEC [Suspect]
     Indication: CHRONIC MYELOID LEUKAEMIA
     Dosage: 200 MG/D
     Route: 048
     Dates: start: 20070501
  2. GLEEVEC [Suspect]
     Dosage: 400 MG/D
     Route: 048
     Dates: start: 20040801, end: 20070501
  3. LEVOTHYROXINE SODIUM [Concomitant]
  4. SOTALOL HCL [Concomitant]
  5. LIPITOR [Concomitant]

REACTIONS (4)
  - EYELID DISORDER [None]
  - LACRIMATION INCREASED [None]
  - VISUAL ACUITY REDUCED [None]
  - WHITE BLOOD CELL COUNT DECREASED [None]
